FAERS Safety Report 14451925 (Version 4)
Quarter: 2021Q1

REPORT INFORMATION
  Report Type: Spontaneous
  Country: US (occurrence: US)
  Receive Date: 20180129
  Receipt Date: 20210201
  Transmission Date: 20210419
  Serious: No
  Sender: FDA-Public Use
  Company Number: US-ABBVIE-17P-163-1990125-00

PATIENT
  Sex: Female

DRUGS (1)
  1. HUMIRA [Suspect]
     Active Substance: ADALIMUMAB
     Indication: PSORIASIS
     Route: 058

REACTIONS (12)
  - Dry skin [Unknown]
  - Stress [Unknown]
  - Discomfort [Unknown]
  - Feeling hot [Unknown]
  - Scratch [Unknown]
  - Stress [Recovered/Resolved]
  - Psoriasis [Unknown]
  - Mental disorder [Unknown]
  - General physical condition abnormal [Unknown]
  - Panic attack [Unknown]
  - Rash macular [Unknown]
  - Emotional distress [Unknown]

NARRATIVE: CASE EVENT DATE: 2019
